FAERS Safety Report 18994266 (Version 2)
Quarter: 2021Q1

REPORT INFORMATION
  Report Type: Spontaneous
  Country: CA (occurrence: CA)
  Receive Date: 20210310
  Receipt Date: 20210325
  Transmission Date: 20210420
  Serious: No
  Sender: FDA-Public Use
  Company Number: CA-BAUSCH-BL-2021-007493

PATIENT
  Age: 44 Year
  Sex: Male

DRUGS (14)
  1. MIDAZOLAM. [Concomitant]
     Active Substance: MIDAZOLAM
     Indication: PROPHYLAXIS
     Dosage: DAILY
     Route: 042
  2. ONDANSETRON [Concomitant]
     Active Substance: ONDANSETRON
     Indication: PROPHYLAXIS
     Route: 042
  3. DEXAMETHASONE. [Concomitant]
     Active Substance: DEXAMETHASONE
     Indication: PROPHYLAXIS
     Dosage: DAILY
     Route: 042
  4. CANNABIDIOL [Concomitant]
     Active Substance: CANNABIDIOL
     Indication: NEURALGIA
     Dosage: VAPORIZED OIL
     Route: 065
  5. DELTA(9)?TETRAHYDROCANNABINOL [Concomitant]
     Indication: NEURALGIA
     Dosage: VAPORIZED OIL, STOPPED CANNABINOID USE 24 HR BEFORE BEGINNING THE KETAMINE INFUSION PROGRAM
     Route: 065
  6. MAGNESIUM SULFATE. [Suspect]
     Active Substance: MAGNESIUM SULFATE
     Indication: NEURALGIA
     Route: 040
  7. MAGNESIUM SULFATE. [Suspect]
     Active Substance: MAGNESIUM SULFATE
     Dosage: 15 MG/KG/HR
     Route: 042
  8. KETAMINE [Suspect]
     Active Substance: KETAMINE
     Indication: NEURALGIA
     Dosage: BOLUS OF 0.5 MG/KG FOLLOWED BY 0.5 MG/KG/HR, TITRATED TO A MAXIMUM OF 1.6 MG/KG/HR BY END OF 2ND DAY
     Route: 040
  9. TEMAZEPAM. [Concomitant]
     Active Substance: TEMAZEPAM
     Indication: NEURALGIA
     Route: 065
  10. AMITRIPTYLINE [Concomitant]
     Active Substance: AMITRIPTYLINE
     Indication: NEURALGIA
     Route: 065
  11. ZOPICLONE [Concomitant]
     Active Substance: ZOPICLONE
     Indication: NEURALGIA
     Route: 065
  12. DELTA(9)?TETRAHYDROCANNABINOL [Concomitant]
     Dosage: RE?INITIATED (TWO?THREE TIMES HIS USUAL DOSE) ON THE EVENING OF THE LAST DAY OF THE INFUSION
     Route: 065
  13. LIDOCAINE. [Suspect]
     Active Substance: LIDOCAINE
     Indication: NEURALGIA
     Route: 065
  14. DULOXETINE. [Concomitant]
     Active Substance: DULOXETINE
     Indication: NEURALGIA
     Route: 065

REACTIONS (1)
  - Therapy partial responder [Unknown]
